FAERS Safety Report 21014940 (Version 2)
Quarter: 2022Q3

REPORT INFORMATION
  Report Type: Spontaneous
  Country: DE (occurrence: DE)
  Receive Date: 20220628
  Receipt Date: 20220713
  Transmission Date: 20221026
  Serious: Yes (Hospitalization)
  Sender: FDA-Public Use
  Company Number: DE-NOVARTISPH-NVSC2022DE146551

PATIENT
  Age: 54 Year
  Sex: Female

DRUGS (5)
  1. ETOPOSIDE [Suspect]
     Active Substance: ETOPOSIDE
     Indication: Diffuse large B-cell lymphoma recurrent
     Dosage: 179 MG
     Route: 042
     Dates: start: 20220601, end: 20220603
  2. CARBOPLATIN [Suspect]
     Active Substance: CARBOPLATIN
     Indication: Diffuse large B-cell lymphoma recurrent
     Dosage: 635 MG
     Route: 042
     Dates: start: 20220602, end: 20220602
  3. IFOSFAMIDE [Suspect]
     Active Substance: IFOSFAMIDE
     Indication: Diffuse large B-cell lymphoma recurrent
     Dosage: 8950 MG
     Route: 042
     Dates: start: 20220602, end: 20220602
  4. RITUXIMAB [Suspect]
     Active Substance: RITUXIMAB
     Indication: Diffuse large B-cell lymphoma recurrent
     Dosage: 671 MG
     Route: 065
     Dates: start: 20220601, end: 20220601
  5. MST [Concomitant]
     Indication: Product used for unknown indication
     Dosage: 70 MG (0.5 DAY)
     Route: 065
     Dates: start: 20200424

REACTIONS (1)
  - Febrile neutropenia [Recovered/Resolved]

NARRATIVE: CASE EVENT DATE: 20220612
